FAERS Safety Report 4872924-2 (Version None)
Quarter: 2006Q1

REPORT INFORMATION
  Report Type: 
  Country: None (occurrence: None)
  Receive Date: 20060105
  Receipt Date: 20050203
  Transmission Date: 20060701
  Serious: No
  Sender: FDA-Public Use
  Company Number: US-BRISTOL-MYERS SQUIBB COMPANY-12848826

PATIENT
  Age: 56 Year
  Sex: Male
  Weight: 88 kg

DRUGS (4)
  1. SERZONE [Suspect]
     Indication: ANXIETY
     Dates: start: 19980101
  2. NEURONTIN [Concomitant]
  3. METFORMIN HCL [Concomitant]
  4. ETODOLAC [Concomitant]

REACTIONS (1)
  - DYSTONIA [None]
